FAERS Safety Report 17730351 (Version 5)
Quarter: 2020Q3

REPORT INFORMATION
  Report Type: Spontaneous
  Country: US (occurrence: US)
  Receive Date: 20200430
  Receipt Date: 20200924
  Transmission Date: 20201102
  Serious: No
  Sender: FDA-Public Use
  Company Number: US-PFIZER INC-2020174609

PATIENT
  Age: 86 Year
  Sex: Male
  Weight: 68.04 kg

DRUGS (5)
  1. ELIQUIS [Concomitant]
     Active Substance: APIXABAN
     Indication: ANTICOAGULANT THERAPY
     Dosage: UNK, 2X/DAY
  2. FUROSEMIDE. [Concomitant]
     Active Substance: FUROSEMIDE
     Indication: DIURETIC THERAPY
     Dosage: 20 MG
  3. VYNDAQEL [Suspect]
     Active Substance: TAFAMIDIS MEGLUMINE
     Indication: CARDIAC AMYLOIDOSIS
     Dosage: 80 MG, 1X/DAY (FOUR CAPSULES A DAY BY MOUTH AT ONCE)
     Route: 048
     Dates: start: 201911
  4. VYNDAQEL [Suspect]
     Active Substance: TAFAMIDIS MEGLUMINE
     Dosage: 20 MG, 1X/DAY
     Route: 048
     Dates: start: 201909
  5. SIMVASTATIN. [Concomitant]
     Active Substance: SIMVASTATIN
     Dosage: UNK

REACTIONS (5)
  - Fatigue [Unknown]
  - Off label use [Unknown]
  - Poor quality sleep [Unknown]
  - Drug ineffective [Unknown]
  - Weight decreased [Unknown]
